FAERS Safety Report 16119649 (Version 1)
Quarter: 2019Q1

REPORT INFORMATION
  Report Type: Spontaneous
  Country: MA (occurrence: MA)
  Receive Date: 20190326
  Receipt Date: 20190326
  Transmission Date: 20190418
  Serious: Yes (Death, Hospitalization)
  Sender: FDA-Public Use
  Company Number: PHHY2019MA068003

PATIENT
  Age: 72 Year
  Sex: Male

DRUGS (1)
  1. UPERIO [Suspect]
     Active Substance: SACUBITRIL\VALSARTAN
     Indication: CONGESTIVE CARDIOMYOPATHY
     Dosage: 50 MG, BID
     Route: 048

REACTIONS (4)
  - Shock [Unknown]
  - Bronchitis [Not Recovered/Not Resolved]
  - Cardiac failure [Fatal]
  - Product use in unapproved indication [Unknown]
